FAERS Safety Report 26032692 (Version 1)
Quarter: 2025Q4

REPORT INFORMATION
  Report Type: Spontaneous
  Country: US (occurrence: US)
  Receive Date: 20251112
  Receipt Date: 20251112
  Transmission Date: 20260117
  Serious: No
  Sender: AUROBINDO
  Company Number: US-AUROBINDO-AUR-APL-2025-046988

PATIENT
  Age: 60 Year
  Sex: Male
  Weight: 90.718 kg

DRUGS (1)
  1. TESTOSTERONE CYPIONATE [Suspect]
     Active Substance: TESTOSTERONE CYPIONATE
     Indication: Blood testosterone decreased
     Dosage: UNK UNK, EVERY WEEK  (FAT OF STOMACH (BELLY))
     Route: 030
     Dates: start: 20250810, end: 20250831

REACTIONS (8)
  - Injection site pain [Recovered/Resolved]
  - Injection site induration [Recovered/Resolved]
  - Injection site swelling [Recovered/Resolved]
  - Swelling [Recovered/Resolved]
  - Injection site mass [Not Recovered/Not Resolved]
  - Product substitution issue [Unknown]
  - Product contamination physical [Recovered/Resolved]
  - Product administration error [Unknown]

NARRATIVE: CASE EVENT DATE: 20250810
